FAERS Safety Report 17657054 (Version 1)
Quarter: 2020Q2

REPORT INFORMATION
  Report Type: Spontaneous
  Country: ES (occurrence: ES)
  Receive Date: 20200410
  Receipt Date: 20200410
  Transmission Date: 20200713
  Serious: Yes (Life-Threatening, Hospitalization, Other)
  Sender: FDA-Public Use
  Company Number: ES-PFM-2020-04234

PATIENT

DRUGS (16)
  1. PROPRANOLOL [Interacting]
     Active Substance: PROPRANOLOL HYDROCHLORIDE
     Indication: INTENTIONAL OVERDOSE
  2. BUPROPION HCL [Interacting]
     Active Substance: BUPROPION HYDROCHLORIDE
     Indication: INTENTIONAL OVERDOSE
  3. QUETIAPINE. [Interacting]
     Active Substance: QUETIAPINE
     Indication: INTENTIONAL OVERDOSE
  4. DIAZEPAM APOTEX, TABLETTEN [Interacting]
     Active Substance: DIAZEPAM
     Indication: INTENTIONAL OVERDOSE
  5. CLONAZEPAM FABRA [Interacting]
     Active Substance: CLONAZEPAM
     Indication: SUICIDE ATTEMPT
     Dosage: 48 MG, UNKNOWN
     Route: 048
     Dates: start: 20200303, end: 20200303
  6. CLONAZEPAM FABRA [Interacting]
     Active Substance: CLONAZEPAM
     Indication: INTENTIONAL OVERDOSE
  7. ZONISAMIDA [Interacting]
     Active Substance: ZONISAMIDE
     Indication: SUICIDE ATTEMPT
     Dosage: 600 MG, UNKNOWN
     Route: 048
     Dates: start: 20200303, end: 20200303
  8. PROPRANOLOL [Suspect]
     Active Substance: PROPRANOLOL HYDROCHLORIDE
     Indication: SUICIDE ATTEMPT
     Dosage: 720 MG, UNKNOWN
     Route: 048
     Dates: start: 20200303, end: 20200303
  9. CLOTIAPINA [Interacting]
     Active Substance: CLOTHIAPINE
     Indication: INTENTIONAL OVERDOSE
  10. CLOTIAPINA [Interacting]
     Active Substance: CLOTHIAPINE
     Indication: SUICIDE ATTEMPT
     Dosage: 240 MG, UNKNOWN
     Route: 048
     Dates: start: 20200303, end: 20200303
  11. ZONISAMIDA [Interacting]
     Active Substance: ZONISAMIDE
     Indication: INTENTIONAL OVERDOSE
  12. BUPROPION HCL [Interacting]
     Active Substance: BUPROPION HYDROCHLORIDE
     Indication: SUICIDE ATTEMPT
     Dosage: 1800 MG, UNKNOWN
     Route: 048
     Dates: start: 20200303, end: 20200303
  13. QUETIAPINE. [Interacting]
     Active Substance: QUETIAPINE
     Indication: SUICIDE ATTEMPT
     Dosage: 7200 MG, UNKNOWN
     Route: 048
     Dates: start: 20200303, end: 20200303
  14. GABAPENTINA [Interacting]
     Active Substance: GABAPENTIN
     Indication: INTENTIONAL OVERDOSE
  15. DIAZEPAM APOTEX, TABLETTEN [Interacting]
     Active Substance: DIAZEPAM
     Indication: SUICIDE ATTEMPT
     Dosage: 60 MG, UNKNOWN
     Route: 048
     Dates: start: 20200303, end: 20200303
  16. GABAPENTINA [Interacting]
     Active Substance: GABAPENTIN
     Indication: SUICIDE ATTEMPT
     Dosage: 4050 MG, UNKNOWN
     Route: 048
     Dates: start: 20200303, end: 20200303

REACTIONS (4)
  - Intentional overdose [Unknown]
  - Coma [Recovered/Resolved]
  - Product use issue [Unknown]
  - Off label use [Unknown]

NARRATIVE: CASE EVENT DATE: 20200303
